FAERS Safety Report 23723092 (Version 9)
Quarter: 2024Q4

REPORT INFORMATION
  Report Type: Report from Study
  Country: FR (occurrence: FR)
  Receive Date: 20240409
  Receipt Date: 20241029
  Transmission Date: 20250115
  Serious: Yes (Other)
  Sender: NOVARTIS
  Company Number: FR-002147023-NVSC2023FR269452

PATIENT
  Sex: Female
  Weight: 68 kg

DRUGS (4)
  1. KISQALI [Suspect]
     Active Substance: RIBOCICLIB
     Indication: Hormone receptor positive HER2 negative breast cancer
     Dosage: 600 MG, QD
     Route: 048
     Dates: start: 20230824, end: 20240124
  2. KISQALI [Suspect]
     Active Substance: RIBOCICLIB
     Dosage: 400 MG, QD
     Route: 048
     Dates: start: 20240124, end: 20240418
  3. FULVESTRANT [Concomitant]
     Active Substance: FULVESTRANT
     Indication: Breast cancer
     Dosage: 250 MG
     Route: 030
     Dates: start: 20230825
  4. ASPIRIN DL-LYSINE [Concomitant]
     Active Substance: ASPIRIN DL-LYSINE
     Indication: Product used for unknown indication
     Route: 065

REACTIONS (16)
  - Haemorrhoids [Unknown]
  - Rectal haemorrhage [Recovered/Resolved]
  - Hepatic cytolysis [Recovered/Resolved]
  - Haemorrhage [Recovered/Resolved]
  - Abdominal pain [Recovered/Resolved]
  - Abdominal pain [Recovered/Resolved]
  - Conjunctivitis [Recovered/Resolved]
  - Rash [Recovered/Resolved]
  - COVID-19 [Recovered/Resolved]
  - Rash macular [Unknown]
  - Faeces hard [Recovered/Resolved]
  - Alopecia [Not Recovered/Not Resolved]
  - Limb discomfort [Recovered/Resolved]
  - Arthralgia [Not Recovered/Not Resolved]
  - Eye disorder [Not Recovered/Not Resolved]
  - Myalgia [Recovered/Resolved]

NARRATIVE: CASE EVENT DATE: 20230824
